FAERS Safety Report 11717370 (Version 14)
Quarter: 2018Q1

REPORT INFORMATION
  Report Type: Spontaneous
  Country: CA (occurrence: CA)
  Receive Date: 20151110
  Receipt Date: 20180222
  Transmission Date: 20180508
  Serious: Yes (Life-Threatening, Other)
  Sender: FDA-Public Use
  Company Number: CA-ROCHE-1657447

PATIENT
  Age: 40 Year
  Sex: Female

DRUGS (9)
  1. XOLAIR [Suspect]
     Active Substance: OMALIZUMAB
     Route: 058
     Dates: start: 20170821
  2. XOLAIR [Suspect]
     Active Substance: OMALIZUMAB
     Indication: ASTHMA
     Route: 058
     Dates: start: 20131120
  3. XOLAIR [Suspect]
     Active Substance: OMALIZUMAB
     Route: 058
     Dates: start: 20131211
  4. SPIRIVA [Concomitant]
     Active Substance: TIOTROPIUM BROMIDE MONOHYDRATE
     Indication: PRODUCT USED FOR UNKNOWN INDICATION
     Route: 055
  5. XOLAIR [Suspect]
     Active Substance: OMALIZUMAB
     Route: 058
     Dates: start: 20170130
  6. XOLAIR [Suspect]
     Active Substance: OMALIZUMAB
     Route: 058
     Dates: start: 20171016
  7. ZENHALE [Concomitant]
     Active Substance: FORMOTEROL FUMARATE\MOMETASONE FUROATE
     Indication: PRODUCT USED FOR UNKNOWN INDICATION
     Route: 055
  8. XOLAIR [Suspect]
     Active Substance: OMALIZUMAB
     Route: 058
     Dates: start: 20180130
  9. XOLAIR [Suspect]
     Active Substance: OMALIZUMAB
     Route: 058
     Dates: start: 20180117

REACTIONS (25)
  - Pyrexia [Unknown]
  - Suicidal ideation [Unknown]
  - Negative thoughts [Unknown]
  - Dizziness [Unknown]
  - Influenza like illness [Unknown]
  - Bronchitis [Unknown]
  - Aphonia [Unknown]
  - Cellulitis [Unknown]
  - Sensitivity to weather change [Unknown]
  - Heart rate increased [Unknown]
  - Sneezing [Unknown]
  - Emotional distress [Unknown]
  - Rhinorrhoea [Unknown]
  - Bronchospasm [Unknown]
  - Spirometry abnormal [Unknown]
  - Blood pressure increased [Unknown]
  - Lumbar vertebral fracture [Unknown]
  - Asthma [Unknown]
  - Stress [Unknown]
  - Nausea [Unknown]
  - Seasonal allergy [Unknown]
  - Body temperature decreased [Unknown]
  - Anxiety [Unknown]
  - Adjustment disorder [Unknown]
  - Dyspnoea [Unknown]

NARRATIVE: CASE EVENT DATE: 20131211
